FAERS Safety Report 20200957 (Version 2)
Quarter: 2022Q2

REPORT INFORMATION
  Report Type: Spontaneous
  Country: CA (occurrence: CA)
  Receive Date: 20211217
  Receipt Date: 20220406
  Transmission Date: 20220721
  Serious: Yes (Other)
  Sender: FDA-Public Use
  Company Number: CA-OTSUKA-2021_043396

PATIENT
  Age: 35 Year
  Sex: Female
  Weight: 86.18 kg

DRUGS (4)
  1. REXULTI [Suspect]
     Active Substance: BREXPIPRAZOLE
     Indication: Depressed mood
     Dosage: 2.0 MILLIGRAM/1 EVERY1 DAYS
     Route: 048
     Dates: end: 202102
  2. REXULTI [Suspect]
     Active Substance: BREXPIPRAZOLE
     Indication: Drug therapy enhancement
  3. SEROQUEL [Concomitant]
     Active Substance: QUETIAPINE FUMARATE
     Indication: Product used for unknown indication
     Dosage: TABLETS
     Route: 065
  4. ZOPICLONE [Concomitant]
     Active Substance: ZOPICLONE
     Indication: Product used for unknown indication
     Dosage: UNK
     Route: 065

REACTIONS (12)
  - Anosognosia [Unknown]
  - Disinhibition [Unknown]
  - Impaired quality of life [Unknown]
  - Alcoholism [Unknown]
  - Judgement impaired [Unknown]
  - Binge eating [Unknown]
  - High risk sexual behaviour [Unknown]
  - Impulsive behaviour [Recovered/Resolved]
  - Economic problem [Unknown]
  - Libido increased [Unknown]
  - Personality change [Unknown]
  - Product use in unapproved indication [Unknown]

NARRATIVE: CASE EVENT DATE: 20201001
